FAERS Safety Report 6335265-2 (Version None)
Quarter: 2009Q3

REPORT INFORMATION
  Report Type: 
  Country: None (occurrence: None)
  Receive Date: 20090831
  Receipt Date: 20090819
  Transmission Date: 20100115
  Serious: Yes (Death, Hospitalization)
  Sender: FDA-Public Use
  Company Number: DE-MERCK-0908DEU00040

PATIENT
  Age: 68 Year
  Sex: Male
  Weight: 64 kg

DRUGS (6)
  1. ZOCOR [Suspect]
     Indication: DYSLIPIDAEMIA
     Route: 048
     Dates: start: 20090101, end: 20090701
  2. ASPIRIN [Suspect]
     Indication: CORONARY ARTERY DISEASE
     Route: 048
     Dates: start: 20010101, end: 20090806
  3. PREDNISOLONE [Suspect]
     Indication: DIARRHOEA
     Route: 048
     Dates: start: 20060101, end: 20090809
  4. ANTHOCYANINS (UNSPECIFIED) AND ASCORBIC ACID AND BIOFLAVONOIDS AND HES [Suspect]
     Indication: IMMUNE ENHANCEMENT THERAPY
     Route: 048
     Dates: start: 20090729, end: 20090805
  5. RAMIPRIL [Suspect]
     Indication: HYPERTENSION
     Route: 048
     Dates: start: 20020101, end: 20090809
  6. TAMSULOSIN HYDROCHLORIDE [Concomitant]
     Indication: BENIGN PROSTATIC HYPERPLASIA
     Route: 048
     Dates: end: 20090601

REACTIONS (1)
  - ACUTE HEPATIC FAILURE [None]
